FAERS Safety Report 7099631-2 (Version None)
Quarter: 2010Q4

REPORT INFORMATION
  Report Type: 
  Country: None (occurrence: None)
  Receive Date: 20101112
  Receipt Date: 20101022
  Transmission Date: 20110411
  Serious: Yes (Hospitalization)
  Sender: FDA-Public Use
  Company Number: US-B.I. PHARMACEUTICALS,INC./RIDGEFIELD-2009-DE-04861BY

PATIENT
  Sex: Male

DRUGS (7)
  1. CATAPRES [Suspect]
     Indication: HYPERTENSION
     Dosage: 0.2 MG
     Route: 048
     Dates: start: 20090217, end: 20090220
  2. RIVAROXABAN [Suspect]
     Indication: CEREBROVASCULAR ACCIDENT PROPHYLAXIS
     Dosage: 20 MG
     Route: 048
     Dates: start: 20070918, end: 20071019
  3. RIVAROXABAN [Suspect]
     Dosage: 20 MG
     Route: 048
     Dates: start: 20071021
  4. BENICAR [Concomitant]
     Indication: HYPERTENSION
     Route: 048
     Dates: start: 20080217
  5. TOPROL-XL [Concomitant]
     Indication: HYPERTENSION
     Route: 048
     Dates: start: 20070514
  6. MINIPRESS [Concomitant]
     Indication: HYPERTENSION
     Route: 048
     Dates: start: 20070510
  7. POTASSIUM CHLORIDE [Concomitant]
     Route: 048
     Dates: start: 20070510

REACTIONS (1)
  - HYPERTENSION [None]
